FAERS Safety Report 9742720 (Version 2)
Quarter: 2015Q3

REPORT INFORMATION
  Report Type: Spontaneous
  Country: US (occurrence: US)
  Receive Date: 20131210
  Receipt Date: 20150805
  Transmission Date: 20151125
  Serious: No
  Sender: FDA-Public Use
  Company Number: US-GILEAD-2009-0025805

PATIENT
  Age: 83 Year
  Sex: Male

DRUGS (12)
  1. LETAIRIS [Suspect]
     Active Substance: AMBRISENTAN
     Indication: PULMONARY ARTERIAL HYPERTENSION
     Route: 048
     Dates: start: 20091119
  2. FUROSEMIDE. [Concomitant]
     Active Substance: FUROSEMIDE
  3. ALLOPURINOL. [Concomitant]
     Active Substance: ALLOPURINOL
  4. LOTREL [Concomitant]
     Active Substance: AMLODIPINE BESYLATE\BENAZEPRIL HYDROCHLORIDE
  5. PULMICORT TURBUHALER [Concomitant]
     Active Substance: BUDESONIDE
  6. IPRATROPIUM BROMIDE/SALBUTAMOL SULFATE [Concomitant]
  7. GLIMEPIRIDE. [Concomitant]
     Active Substance: GLIMEPIRIDE
  8. INDOMETHACIN. [Concomitant]
     Active Substance: INDOMETHACIN
  9. LIPITOR [Concomitant]
     Active Substance: ATORVASTATIN CALCIUM
  10. PLAVIX [Concomitant]
     Active Substance: CLOPIDOGREL BISULFATE
  11. VITAMIN D [Concomitant]
     Active Substance: CHOLECALCIFEROL
  12. BROVANA [Concomitant]
     Active Substance: ARFORMOTEROL TARTRATE

REACTIONS (3)
  - Tremor [Unknown]
  - Nervousness [Unknown]
  - No therapeutic response [Unknown]
